FAERS Safety Report 7555823-7 (Version None)
Quarter: 2011Q2

REPORT INFORMATION
  Report Type: 
  Country: None (occurrence: None)
  Receive Date: 20110618
  Receipt Date: 20110606
  Transmission Date: 20111010
  Serious: Yes (Hospitalization, Other)
  Sender: FDA-Public Use
  Company Number: US-BAYER-2011-009422

PATIENT
  Age: 38 Year
  Sex: Female
  Weight: 104.31 kg

DRUGS (6)
  1. HYDROCHLOROTHIAZIDE [Concomitant]
     Dosage: 25 MG, UNK
  2. ANTIBIOTICS [Concomitant]
     Indication: URINARY TRACT INFECTION
     Dosage: UNK
     Route: 048
     Dates: start: 20090101
  3. FLAGYL [Concomitant]
     Dosage: 500 UNK, UNK
     Dates: start: 20090102
  4. LEVAQUIN [Concomitant]
     Indication: SINUSITIS
     Dosage: UNK
     Dates: start: 20090116
  5. DROSPIRENONE AND ETHINYL ESTRADIOL [Suspect]
     Indication: PRODUCT USED FOR UNKNOWN INDICATION
     Dosage: UNK
     Route: 048
     Dates: start: 20081212, end: 20090122
  6. LISINOPRIL [Concomitant]
     Dosage: 10 MG, UNK

REACTIONS (4)
  - EMOTIONAL DISTRESS [None]
  - PAIN [None]
  - DEEP VEIN THROMBOSIS [None]
  - SCAR [None]
